FAERS Safety Report 15234796 (Version 1)
Quarter: 2018Q3

REPORT INFORMATION
  Report Type: Report from Study
  Country: JP (occurrence: JP)
  Receive Date: 20180803
  Receipt Date: 20180803
  Transmission Date: 20181010
  Serious: Yes (Death)
  Sender: FDA-Public Use
  Company Number: JP-BEH-2018093404

PATIENT
  Age: 36 Year
  Sex: Male
  Weight: 70 kg

DRUGS (5)
  1. KAYTWO N [Concomitant]
     Active Substance: MENATETRENONE
     Indication: PROCOAGULANT THERAPY
     Dosage: 10 MG, UNK
     Route: 042
     Dates: start: 20171216, end: 20171216
  2. BERIPLEX P/N [Suspect]
     Active Substance: COAGULATION FACTOR IX HUMAN\COAGULATION FACTOR VII HUMAN\COAGULATION FACTOR X HUMAN\PROTEIN C\PROTEIN S HUMAN\PROTHROMBIN
     Dosage: UNK
     Route: 042
  3. BERIPLEX P/N [Suspect]
     Active Substance: COAGULATION FACTOR IX HUMAN\COAGULATION FACTOR VII HUMAN\COAGULATION FACTOR X HUMAN\PROTEIN C\PROTEIN S HUMAN\PROTHROMBIN
     Dosage: UNK
     Route: 042
  4. BERIPLEX P/N [Suspect]
     Active Substance: COAGULATION FACTOR IX HUMAN\COAGULATION FACTOR VII HUMAN\COAGULATION FACTOR X HUMAN\PROTEIN C\PROTEIN S HUMAN\PROTHROMBIN
     Indication: HAEMORRHAGE
     Dosage: 1500 IU, UNK
     Route: 042
     Dates: start: 20171216
  5. HISICEOL [Concomitant]
     Indication: INTRACRANIAL PRESSURE INCREASED
     Dosage: UNK
     Route: 065
     Dates: start: 20171216, end: 20171216

REACTIONS (1)
  - Death [Fatal]
